FAERS Safety Report 5234659-6 (Version None)
Quarter: 2007Q1

REPORT INFORMATION
  Report Type: 
  Country: None (occurrence: None)
  Receive Date: 20070209
  Receipt Date: 20070129
  Transmission Date: 20070707
  Serious: No
  Sender: FDA-Public Use
  Company Number: US-ELI_LILLY_AND_COMPANY-US200608006126

PATIENT
  Age: 71 Year
  Sex: Male

DRUGS (4)
  1. CIALIS [Suspect]
     Indication: ERECTILE DYSFUNCTION
     Dosage: 10 MG, UNK
  2. TERAZOSIN HCL [Concomitant]
  3. VYTORIN [Concomitant]
  4. ASPIRIN [Concomitant]

REACTIONS (3)
  - CATARACT OPERATION [None]
  - MACULOPATHY [None]
  - RETINAL OEDEMA [None]
